FAERS Safety Report 7275187-6 (Version None)
Quarter: 2011Q1

REPORT INFORMATION
  Report Type: 
  Country: None (occurrence: None)
  Receive Date: 20110204
  Receipt Date: 20110125
  Transmission Date: 20110831
  Serious: Yes (Hospitalization)
  Sender: FDA-Public Use
  Company Number: PHHO2010LT19723

PATIENT
  Sex: Female
  Weight: 68 kg

DRUGS (12)
  1. METOPROLOL TARTRATE [Concomitant]
     Indication: CARDIAC FAILURE CONGESTIVE
  2. ATORVASTATIN [Concomitant]
     Indication: DYSLIPIDAEMIA
  3. BLINDED ALISKIREN [Suspect]
     Dosage: DOUBLE BLIND
     Route: 048
     Dates: start: 20101125, end: 20101228
  4. ENALAPRIL MALEATE [Suspect]
     Dosage: DOUBLE BLIND
     Route: 048
     Dates: start: 20101125, end: 20101228
  5. BLINDED NO TREATMENT RECEIVED [Suspect]
     Dosage: DOUBLE BLIND
     Route: 048
     Dates: start: 20101125, end: 20101228
  6. ACETYLSALICYLIC ACID SRT [Concomitant]
  7. SPIRONOLACTONE [Concomitant]
     Indication: CARDIAC FAILURE CONGESTIVE
  8. LEVOTHYROXINE SODIUM [Concomitant]
  9. ALISKIREN [Suspect]
     Indication: CARDIAC FAILURE
     Dosage: 150 MG, QD
     Route: 048
     Dates: start: 20101110, end: 20101124
  10. COMPARATOR ENALAPRIL [Suspect]
     Indication: CARDIAC FAILURE
     Dosage: 10 MG, QD
     Route: 048
     Dates: start: 20101015, end: 20101026
  11. TORSEMIDE [Concomitant]
     Indication: CARDIAC FAILURE CONGESTIVE
  12. COMPARATOR ENALAPRIL [Suspect]
     Dosage: 20 MG, QD
     Route: 048
     Dates: start: 20101027, end: 20101124

REACTIONS (6)
  - CEREBROVASCULAR ACCIDENT [None]
  - HEADACHE [None]
  - AMNESIA [None]
  - HYPOTENSION [None]
  - MUSCULAR WEAKNESS [None]
  - SPEECH DISORDER [None]
